FAERS Safety Report 10192957 (Version 1)
Quarter: 2014Q2

REPORT INFORMATION
  Report Type: Report from Study
  Country: FR (occurrence: FR)
  Receive Date: 20140523
  Receipt Date: 20140523
  Transmission Date: 20141212
  Serious: Yes (Hospitalization)
  Sender: FDA-Public Use
  Company Number: FR-BIOMARINAP-FR-2014-103303

PATIENT
  Age: 1 Year
  Sex: Male
  Weight: 14 kg

DRUGS (4)
  1. BMN 110 [Suspect]
     Indication: MUCOPOLYSACCHARIDOSIS IV
     Dosage: 30 MG, UNK
     Route: 042
     Dates: start: 20121003
  2. PARACETAMOL [Concomitant]
     Indication: PREMEDICATION
  3. ATARAX                             /00058401/ [Concomitant]
     Indication: PREMEDICATION
  4. POLARAMINE [Concomitant]
     Indication: CYANOSIS
     Dosage: 5 MG, UNK

REACTIONS (1)
  - Rash pustular [Recovered/Resolved]
